FAERS Safety Report 7374975-5 (Version None)
Quarter: 2011Q1

REPORT INFORMATION
  Report Type: 
  Country: None (occurrence: None)
  Receive Date: 20110325
  Receipt Date: 20110321
  Transmission Date: 20110831
  Serious: Yes (Death)
  Sender: FDA-Public Use
  Company Number: PHHY2011US23084

PATIENT
  Sex: Female

DRUGS (2)
  1. TASIGNA [Suspect]
     Indication: GASTRIC CANCER
     Dosage: 400 MG, BID
     Route: 048
     Dates: start: 20100109
  2. TASIGNA [Suspect]
     Indication: NEOPLASM MALIGNANT

REACTIONS (1)
  - DEATH [None]
